FAERS Safety Report 8221243-5 (Version None)
Quarter: 2012Q1

REPORT INFORMATION
  Report Type: 
  Country: None (occurrence: None)
  Receive Date: 20120320
  Receipt Date: 20120313
  Transmission Date: 20120608
  Serious: Yes (Hospitalization, Other)
  Sender: FDA-Public Use
  Company Number: PHEH2012US005904

PATIENT
  Sex: Male
  Weight: 82.54 kg

DRUGS (11)
  1. VALTREX [Concomitant]
     Dosage: 500 MG, QD
     Dates: start: 19990630
  2. CIPROFLOXACIN [Concomitant]
     Dosage: 500 MG, BID
  3. MELPHALAN HYDROCHLORIDE [Concomitant]
  4. LIDOCAINE [Concomitant]
     Route: 061
  5. OXYCONTIN [Concomitant]
     Route: 048
  6. AREDIA [Suspect]
     Indication: MULTIPLE MYELOMA
  7. KEFLEX [Concomitant]
  8. FLUCONAZOLE [Concomitant]
     Dosage: 200 MG, QD
     Dates: start: 19990630
  9. AREDIA [Suspect]
     Indication: METASTASES TO BONE
     Dates: start: 19990601, end: 20040701
  10. AREDIA [Suspect]
     Indication: HYPERCALCAEMIA
  11. VANCOMYCIN [Concomitant]
     Dosage: 1500 UKN, UNK
     Dates: start: 19990630

REACTIONS (8)
  - KYPHOSIS [None]
  - FALL [None]
  - OSTEOPENIA [None]
  - MOUTH ULCERATION [None]
  - RIB FRACTURE [None]
  - MUSCULOSKELETAL PAIN [None]
  - MUCOSAL INFLAMMATION [None]
  - DECREASED APPETITE [None]
